FAERS Safety Report 5509421-7 (Version None)
Quarter: 2007Q4

REPORT INFORMATION
  Report Type: 
  Country: None (occurrence: None)
  Receive Date: 20071106
  Receipt Date: 20071022
  Transmission Date: 20080405
  Serious: Yes (Hospitalization)
  Sender: FDA-Public Use
  Company Number: 238730K07USA

PATIENT
  Age: 45 Year
  Sex: Male

DRUGS (5)
  1. REBIF [Suspect]
     Indication: MULTIPLE SCLEROSIS
     Dosage: 44 MCG, 3 IN 1 WEEKS, SUBCUTANEOUS
     Route: 058
     Dates: start: 20030630
  2. NORVASC [Concomitant]
  3. LISINOPRIL [Concomitant]
  4. VICODIN [Concomitant]
  5. BACLOFEN [Concomitant]

REACTIONS (7)
  - BACK INJURY [None]
  - BACK PAIN [None]
  - BONE GRAFT [None]
  - DRUG DOSE OMISSION [None]
  - DRUG INEFFECTIVE [None]
  - OSTEOARTHRITIS [None]
  - PAIN IN EXTREMITY [None]
